FAERS Safety Report 8991231 (Version 1)
Quarter: 2012Q4

REPORT INFORMATION
  Report Type: Report from Study
  Country: CA (occurrence: CA)
  Receive Date: 20121231
  Receipt Date: 20121231
  Transmission Date: 20130627
  Serious: Yes (Other)
  Sender: FDA-Public Use
  Company Number: CA-ROCHE-1172372

PATIENT
  Age: 51 Year
  Sex: Female
  Weight: 66.06 kg

DRUGS (1)
  1. OMALIZUMAB [Suspect]
     Indication: ASTHMA
     Route: 058
     Dates: start: 20060110

REACTIONS (14)
  - Upper respiratory tract infection [Recovered/Resolved]
  - Cholelithiasis [Unknown]
  - Respiratory tract congestion [Unknown]
  - Hypersensitivity [Unknown]
  - Heart rate increased [Recovered/Resolved]
  - Paraesthesia [Recovered/Resolved]
  - Hypoaesthesia oral [Recovered/Resolved]
  - Neuropathy peripheral [Unknown]
  - Nasopharyngitis [Unknown]
  - Palpitations [Unknown]
  - Malaise [Unknown]
  - Cold sweat [Recovered/Resolved]
  - Asthma [Recovering/Resolving]
  - Breath sounds abnormal [Unknown]
